FAERS Safety Report 9227426 (Version 1)
Quarter: 2013Q2

REPORT INFORMATION
  Report Type: Spontaneous
  Country: ES (occurrence: ES)
  Receive Date: 20130412
  Receipt Date: 20130412
  Transmission Date: 20140414
  Serious: Yes (Life-Threatening)
  Sender: FDA-Public Use
  Company Number: ES-ELI_LILLY_AND_COMPANY-ES201304002150

PATIENT
  Age: 71 Year
  Sex: Female
  Weight: 59 kg

DRUGS (13)
  1. FORSTEO [Suspect]
     Indication: OSTEOPOROSIS
     Dosage: 20 UG, QD
     Route: 058
     Dates: start: 20120901, end: 20130403
  2. AMERIDE [Concomitant]
     Indication: HYPERTENSION
     Dosage: 5 MG, UNK
     Route: 048
  3. AMERIDE [Concomitant]
     Dosage: 2.5 MG, UNK
     Route: 048
  4. ATORVASTATINA [Concomitant]
     Indication: HYPERCHOLESTEROLAEMIA
     Dosage: 10 MG, QD
     Route: 048
  5. CARBOCAL D [Concomitant]
     Indication: OSTEOPOROSIS
     Dosage: UNK, QD
     Route: 048
  6. HIDROFEROL [Concomitant]
     Indication: OSTEOPOROSIS
     Dosage: UNK, MONTHLY (1/M)
     Route: 048
  7. SINTROM [Concomitant]
     Indication: MITRAL VALVE STENOSIS
     Dosage: UNK
     Route: 048
  8. DILUTOL [Concomitant]
     Dosage: 5 MG, QD
     Route: 048
  9. ORFIDAL [Concomitant]
     Indication: DEPRESSION
     Dosage: UNK, QD
     Route: 048
  10. DICLOFENACO NORMON [Concomitant]
     Indication: PAIN
     Dosage: 50 MG, QD
     Route: 048
  11. DICLOFENACO NORMON [Concomitant]
     Dosage: 50 MG, BID
     Route: 048
  12. PARACETAMOL [Concomitant]
     Indication: PAIN
     Dosage: UNK, QD
     Route: 048
  13. POLARAMINE [Concomitant]
     Indication: HYPERSENSITIVITY
     Dosage: 2 MG, TID
     Route: 048
     Dates: start: 20130403, end: 20130403

REACTIONS (6)
  - Laryngeal oedema [Recovered/Resolved]
  - Generalised erythema [Recovered/Resolved]
  - Pruritus [Recovered/Resolved]
  - Vomiting [Recovered/Resolved]
  - Abdominal discomfort [Recovered/Resolved]
  - Fatigue [Unknown]
